FAERS Safety Report 22664972 (Version 1)
Quarter: 2023Q2

REPORT INFORMATION
  Report Type: Spontaneous
  Country: US (occurrence: None)
  Receive Date: 20230630
  Receipt Date: 20230630
  Transmission Date: 20230722
  Serious: Yes (unspecified)
  Sender: FDA-Public Use
  Company Number: None

PATIENT
  Age: 5 Year
  Sex: Male
  Weight: 11.25 kg

DRUGS (2)
  1. PREDNISOLONE [Suspect]
     Active Substance: PREDNISOLONE
     Indication: Eczema
     Dates: start: 20220825, end: 20220831
  2. MUPIROCIN OINTMENT [Concomitant]

REACTIONS (2)
  - Mood swings [None]
  - Hypertension [None]

NARRATIVE: CASE EVENT DATE: 20220829
